FAERS Safety Report 8230213-2 (Version None)
Quarter: 2012Q1

REPORT INFORMATION
  Report Type: 
  Country: None (occurrence: None)
  Receive Date: 20120321
  Receipt Date: 20120321
  Transmission Date: 20120608
  Serious: Yes (Life-Threatening, Hospitalization)
  Sender: FDA-Public Use
  Company Number: None

PATIENT
  Sex: Male
  Weight: 112.81 kg

DRUGS (4)
  1. SIMVASTATIN [Suspect]
     Indication: HYPERLIPIDAEMIA
     Dosage: 10 MG EVERY NIGHT ORAL , 2:00AM
     Route: 048
     Dates: start: 20120107
  2. AZITHROMYCIN [Concomitant]
  3. RISPERIDONE [Suspect]
     Indication: BIPOLAR DISORDER
     Dosage: 0.5 MG TWICE DAILY ORAL PRIOR TO ADMIT ON
     Route: 048
     Dates: start: 20120106
  4. ATORVASTATIN [Concomitant]

REACTIONS (4)
  - MYOSITIS [None]
  - ANURIA [None]
  - HAEMODIALYSIS [None]
  - ACUTE CORONARY SYNDROME [None]
